FAERS Safety Report 12269250 (Version 1)
Quarter: 2016Q2

REPORT INFORMATION
  Report Type: Spontaneous
  Country: US (occurrence: US)
  Receive Date: 20160414
  Receipt Date: 20160414
  Transmission Date: 20160815
  Serious: Yes (Death, Other)
  Sender: FDA-Public Use
  Company Number: PHHY2016US047945

PATIENT
  Age: 66 Year
  Sex: Male

DRUGS (12)
  1. CEFOXITIN [Concomitant]
     Active Substance: CEFOXITIN SODIUM
     Indication: MYCOBACTERIAL INFECTION
  2. AZITHROMYCIN ANHYDROUS. [Concomitant]
     Active Substance: AZITHROMYCIN ANHYDROUS
     Indication: ASPERGILLUS INFECTION
     Dosage: 500 MG, QD
     Route: 065
  3. LINEZOLID. [Concomitant]
     Active Substance: LINEZOLID
     Indication: MYCOBACTERIAL INFECTION
  4. LINEZOLID. [Concomitant]
     Active Substance: LINEZOLID
     Indication: ASPERGILLUS INFECTION
     Dosage: 600 MG, BID
     Route: 065
  5. AZITHROMYCIN ANHYDROUS. [Concomitant]
     Active Substance: AZITHROMYCIN ANHYDROUS
     Indication: MYCOBACTERIAL INFECTION
  6. CEFOXITIN [Concomitant]
     Active Substance: CEFOXITIN SODIUM
     Indication: ASPERGILLUS INFECTION
     Dosage: 2 UNK, Q6H
     Route: 065
  7. GANCICLOVIR. [Concomitant]
     Active Substance: GANCICLOVIR
     Indication: MYCOBACTERIAL INFECTION
  8. IMIPENEM [Concomitant]
     Active Substance: IMIPENEM
     Indication: ASPERGILLUS INFECTION
     Route: 065
  9. VORICONAZOLE. [Suspect]
     Active Substance: VORICONAZOLE
     Indication: ASPERGILLUS INFECTION
     Dosage: 300 MG, QD
     Route: 065
  10. VORICONAZOLE. [Suspect]
     Active Substance: VORICONAZOLE
     Indication: MYCOBACTERIAL INFECTION
  11. GANCICLOVIR. [Concomitant]
     Active Substance: GANCICLOVIR
     Indication: ASPERGILLUS INFECTION
     Route: 065
  12. IMIPENEM [Concomitant]
     Active Substance: IMIPENEM
     Indication: MYCOBACTERIAL INFECTION

REACTIONS (3)
  - Septic shock [Fatal]
  - Drug resistance [Fatal]
  - Acute respiratory distress syndrome [Fatal]
